FAERS Safety Report 8791342 (Version 2)
Quarter: 2012Q4

REPORT INFORMATION
  Report Type: Spontaneous
  Country: US (occurrence: None)
  Receive Date: 20120911
  Receipt Date: 20121011
  Transmission Date: 20130627
  Serious: Yes (Other)
  Sender: FDA-Public Use
  Company Number: AUR-APL-2012-03858

PATIENT
  Age: 33 Year
  Sex: Female

DRUGS (5)
  1. SERTRALINE (SERTRALINE) (SERTRALINE) [Suspect]
     Indication: DEPRESSION
  2. VENLAFAXINE [Suspect]
     Indication: DEPRESSION
  3. LAMOTRIGINE [Suspect]
     Indication: SEIZURES
  4. TRAMADOL [Suspect]
     Indication: NEUROPATHIC PAIN
  5. OXCARBAZEPINE [Suspect]
     Indication: SEIZURES

REACTIONS (11)
  - Drug ineffective [None]
  - Disturbance in attention [None]
  - Depression [None]
  - Epilepsy [None]
  - Drug abuser [None]
  - Disturbance in attention [None]
  - Activities of daily living impaired [None]
  - Impaired work ability [None]
  - Impaired self-care [None]
  - Incorrect dose administered [None]
  - Intentional drug misuse [None]
